FAERS Safety Report 5657834-5 (Version None)
Quarter: 2008Q1

REPORT INFORMATION
  Report Type: 
  Country: None (occurrence: None)
  Receive Date: 20080310
  Receipt Date: 20080102
  Transmission Date: 20080703
  Serious: Yes (Hospitalization)
  Sender: FDA-Public Use
  Company Number: US-ASTRAZENECA-2008UW00046

PATIENT
  Age: 893 Month
  Sex: Female
  Weight: 64 kg

DRUGS (4)
  1. LISINOPRIL [Suspect]
     Indication: CARDIAC FAILURE CONGESTIVE
     Route: 048
  2. EPTIFIBATIDE CODE NOT BROKEN [Suspect]
     Indication: ACUTE CORONARY SYNDROME
     Route: 042
     Dates: start: 20060209, end: 20060209
  3. EPTIFIBATIDE CODE NOT BROKEN [Suspect]
     Route: 042
     Dates: start: 20060209
  4. SPIRONOLACTONE [Suspect]
     Indication: DIURETIC THERAPY

REACTIONS (2)
  - ANGIOEDEMA [None]
  - HYPONATRAEMIA [None]
